FAERS Safety Report 11032295 (Version 2)
Quarter: 2015Q2

REPORT INFORMATION
  Report Type: Spontaneous
  Country: US (occurrence: US)
  Receive Date: 20150415
  Receipt Date: 20150525
  Transmission Date: 20150821
  Serious: No
  Sender: FDA-Public Use
  Company Number: US-JNJFOC-20140415520

PATIENT
  Sex: Female
  Weight: 90.72 kg

DRUGS (4)
  1. XARELTO [Suspect]
     Active Substance: RIVAROXABAN
     Indication: THROMBOSIS
     Route: 048
     Dates: start: 201311, end: 2013
  2. XARELTO [Suspect]
     Active Substance: RIVAROXABAN
     Indication: THROMBOSIS
     Route: 048
     Dates: start: 2013
  3. BENICAR [Concomitant]
     Active Substance: OLMESARTAN MEDOXOMIL
     Indication: HYPERTENSION
     Route: 048
  4. VYTORIN [Concomitant]
     Active Substance: EZETIMIBE\SIMVASTATIN
     Dosage: 10/20 MG
     Route: 048

REACTIONS (8)
  - Arthritis [Unknown]
  - Pain [Unknown]
  - Alopecia [Unknown]
  - Back pain [Unknown]
  - Urinary tract infection [Unknown]
  - Pruritus [Unknown]
  - Asthenia [Unknown]
  - Toothache [Unknown]
